FAERS Safety Report 4390613-8 (Version None)
Quarter: 2004Q2

REPORT INFORMATION
  Report Type: 
  Country: None (occurrence: None)
  Receive Date: 20040630
  Receipt Date: 20040615
  Transmission Date: 20050107
  Serious: Yes (Hospitalization)
  Sender: FDA-Public Use
  Company Number: 190002L03USA

PATIENT
  Age: 38 Year
  Sex: Female

DRUGS (2)
  1. MENOTROPINS [Suspect]
     Indication: INFERTILITY FEMALE
  2. CHORIONIC GONADOTROPIN [Suspect]
     Dosage: 1 IN 1 ONCE

REACTIONS (6)
  - EXCESSIVE EXERCISE [None]
  - LIGAMENT INJURY [None]
  - OVARIAN CYST [None]
  - OVARIAN ENLARGEMENT [None]
  - OVARIAN NECROSIS [None]
  - OVARIAN TORSION [None]
